FAERS Safety Report 12191592 (Version 3)
Quarter: 2016Q2

REPORT INFORMATION
  Report Type: Spontaneous
  Country: JP (occurrence: JP)
  Receive Date: 20160318
  Receipt Date: 20160405
  Transmission Date: 20160815
  Serious: Yes (Hospitalization)
  Sender: FDA-Public Use
  Company Number: JP-ASTRAZENECA-2016SE06136

PATIENT
  Age: 50 Year
  Sex: Female
  Weight: 65 kg

DRUGS (9)
  1. SENNARIDE [Concomitant]
     Active Substance: SENNOSIDES A AND B
     Indication: ENDOSCOPY LARGE BOWEL
     Route: 048
     Dates: start: 20151216, end: 20151216
  2. REBAMIPIDE [Concomitant]
     Active Substance: REBAMIPIDE
     Indication: GASTRITIS
     Route: 048
     Dates: start: 20151219, end: 20151222
  3. METGLUCO [Concomitant]
     Active Substance: METFORMIN HYDROCHLORIDE
     Indication: TYPE 2 DIABETES MELLITUS
     Route: 048
     Dates: start: 201510, end: 20151222
  4. KENEI G ENEMA [Concomitant]
     Active Substance: GLYCERIN
     Indication: ENDOSCOPY LARGE BOWEL
     Route: 054
     Dates: start: 20151217, end: 20151217
  5. DOMPERIDONE [Concomitant]
     Active Substance: DOMPERIDONE
     Indication: GASTRITIS
     Route: 048
     Dates: start: 20151219, end: 20151222
  6. FORXIGA [Suspect]
     Active Substance: DAPAGLIFLOZIN
     Indication: TYPE 2 DIABETES MELLITUS
     Route: 048
     Dates: start: 201511, end: 20151222
  7. NIFLEC [Suspect]
     Active Substance: BICARBONATE ION\POLYETHYLENE GLYCOLS\POTASSIUM CATION\SODIUM CHLORIDE\SODIUM SULFATE ANHYDROUS
     Indication: ENDOSCOPY LARGE BOWEL
     Route: 048
     Dates: start: 20151217, end: 20151217
  8. GASCON [Concomitant]
     Active Substance: DIMETHICONE
     Indication: ENDOSCOPY LARGE BOWEL
     Route: 048
     Dates: start: 20151217, end: 20151217
  9. MIYA-BM [Concomitant]
     Active Substance: CLOSTRIDIUM BUTYRICUM SPORES STRAIN M-55
     Indication: GASTRITIS
     Route: 048
     Dates: start: 20151219, end: 20151222

REACTIONS (3)
  - Dehydration [Recovering/Resolving]
  - Diabetic ketoacidosis [Recovering/Resolving]
  - Occult blood positive [Recovering/Resolving]

NARRATIVE: CASE EVENT DATE: 20151217
